FAERS Safety Report 9139412 (Version 1)
Quarter: 2013Q1

REPORT INFORMATION
  Report Type: Spontaneous
  Country: US (occurrence: None)
  Receive Date: 20130205
  Receipt Date: 20130205
  Transmission Date: 20140127
  Serious: No
  Sender: FDA-Public Use
  Company Number: ADR-2013-00148

PATIENT
  Sex: Female

DRUGS (1)
  1. LIORESAL INTRATHECAL (BACLOFEN INJECTION) [Suspect]
     Indication: CEREBRAL PALSY

REACTIONS (7)
  - Muscle spasticity [None]
  - Condition aggravated [None]
  - Drug ineffective [None]
  - Device occlusion [None]
  - Underdose [None]
  - Abasia [None]
  - Weight increased [None]
